FAERS Safety Report 24586388 (Version 2)
Quarter: 2024Q4

REPORT INFORMATION
  Report Type: Spontaneous
  Country: US (occurrence: US)
  Receive Date: 20241106
  Receipt Date: 20241219
  Transmission Date: 20250114
  Serious: No
  Sender: BIOGEN
  Company Number: US-BIOGEN-2024BI01288967

PATIENT
  Age: 73 Year
  Sex: Female

DRUGS (3)
  1. QALSODY [Suspect]
     Active Substance: TOFERSEN
     Indication: Amyotrophic lateral sclerosis
     Route: 050
     Dates: start: 20241016
  2. QALSODY [Suspect]
     Active Substance: TOFERSEN
     Route: 050
     Dates: start: 20241030
  3. QALSODY [Suspect]
     Active Substance: TOFERSEN
     Route: 050
     Dates: start: 20241016, end: 20241211

REACTIONS (3)
  - Back pain [Recovered/Resolved]
  - Neuralgia [Recovered/Resolved]
  - Procedural pain [Not Recovered/Not Resolved]

NARRATIVE: CASE EVENT DATE: 20241211
